FAERS Safety Report 17610628 (Version 1)
Quarter: 2020Q1

REPORT INFORMATION
  Report Type: Spontaneous
  Country: US (occurrence: US)
  Receive Date: 20200330
  Receipt Date: 20200330
  Transmission Date: 20200409
  Serious: Yes (Hospitalization)
  Sender: FDA-Public Use
  Company Number: None

PATIENT
  Age: 79 Year
  Sex: Male
  Weight: 99 kg

DRUGS (1)
  1. DRONEDARONE (DRONEDARONE 400MG TAB) [Suspect]
     Active Substance: DRONEDARONE
     Indication: CARDIAC DISORDER
     Route: 048
     Dates: start: 20181213, end: 20190226

REACTIONS (2)
  - Dysuria [None]
  - Acute kidney injury [None]

NARRATIVE: CASE EVENT DATE: 20190226
